FAERS Safety Report 6698087-9 (Version None)
Quarter: 2010Q2

REPORT INFORMATION
  Report Type: 
  Country: None (occurrence: None)
  Receive Date: 20100427
  Receipt Date: 20100420
  Transmission Date: 20101027
  Serious: Yes (Hospitalization)
  Sender: FDA-Public Use
  Company Number: US-SANOFI-AVENTIS-2010SA012942

PATIENT
  Age: 59 Year
  Sex: Female

DRUGS (1)
  1. NASACORT AQ [Suspect]
     Route: 045

REACTIONS (3)
  - ASTHMA [None]
  - HYPERSENSITIVITY [None]
  - PRODUCT QUALITY ISSUE [None]
